FAERS Safety Report 9033111 (Version 3)
Quarter: 2013Q2

REPORT INFORMATION
  Report Type: Spontaneous
  Country: US (occurrence: US)
  Receive Date: 20130128
  Receipt Date: 20130405
  Transmission Date: 20140414
  Serious: Yes (Other)
  Sender: FDA-Public Use
  Company Number: US-PFIZER INC-2013030153

PATIENT
  Age: 87 Year
  Sex: Female

DRUGS (2)
  1. PREMARIN [Suspect]
     Indication: OESTROGEN REPLACEMENT THERAPY
     Dosage: UNK
  2. PREMARIN [Suspect]
     Dosage: UNK
     Route: 048
     Dates: start: 20130226

REACTIONS (4)
  - Panic attack [Unknown]
  - Depressed mood [Unknown]
  - Nasopharyngitis [Unknown]
  - Hot flush [Unknown]
